FAERS Safety Report 13564386 (Version 2)
Quarter: 2017Q4

REPORT INFORMATION
  Report Type: Spontaneous
  Country: US (occurrence: US)
  Receive Date: 20170519
  Receipt Date: 20171205
  Transmission Date: 20180320
  Serious: Yes (Hospitalization, Disabling, Other)
  Sender: FDA-Public Use
  Company Number: US-009507513-1003USA03103

PATIENT
  Sex: Female
  Weight: 68.04 kg

DRUGS (9)
  1. DEPAKOTE [Concomitant]
     Active Substance: DIVALPROEX SODIUM
     Indication: PRODUCT USED FOR UNKNOWN INDICATION
     Dosage: 1000 MG, QD
     Route: 048
     Dates: start: 2002, end: 20051206
  2. ZOLOFT [Concomitant]
     Active Substance: SERTRALINE HYDROCHLORIDE
     Indication: DEPRESSION
  3. FOSAMAX [Suspect]
     Active Substance: ALENDRONATE SODIUM
     Dosage: 70 MG, QW
     Route: 048
     Dates: start: 20040906, end: 2009
  4. ATIVAN [Concomitant]
     Active Substance: LORAZEPAM
     Indication: ANXIETY
     Dosage: UNK, UNKNOWN
     Route: 065
     Dates: start: 199812
  5. ZOLOFT [Concomitant]
     Active Substance: SERTRALINE HYDROCHLORIDE
     Indication: ANXIETY
     Dosage: UNK, UNKNOWN
     Route: 065
     Dates: start: 1990
  6. SEROQUEL [Concomitant]
     Active Substance: QUETIAPINE FUMARATE
     Indication: PRODUCT USED FOR UNKNOWN INDICATION
     Dosage: 100 MG, HS
     Route: 048
     Dates: start: 2002
  7. FOSAMAX [Suspect]
     Active Substance: ALENDRONATE SODIUM
     Indication: OSTEOPOROSIS
     Dosage: 35 MG, QW
     Route: 048
     Dates: start: 2004, end: 2008
  8. LEVOXYL [Concomitant]
     Active Substance: LEVOTHYROXINE SODIUM
     Indication: PRODUCT USED FOR UNKNOWN INDICATION
     Dosage: 50 ?G, QD
     Route: 048
     Dates: start: 2002
  9. LITHIUM CARBONATE. [Concomitant]
     Active Substance: LITHIUM CARBONATE
     Indication: BIPOLAR DISORDER
     Dosage: UNK, UNKNOWN
     Route: 065
     Dates: start: 1995, end: 2010

REACTIONS (51)
  - Ischaemic cerebral infarction [Unknown]
  - Adverse event [Unknown]
  - Gastrooesophageal reflux disease [Unknown]
  - Bursitis [Unknown]
  - Proteinuria [Unknown]
  - Angiopathy [Unknown]
  - Dysphonia [Unknown]
  - Atrial septal defect [Not Recovered/Not Resolved]
  - Delusion [Unknown]
  - Fibrocystic breast disease [Unknown]
  - Hyperlipidaemia [Unknown]
  - Sinus tachycardia [Unknown]
  - Leukocytosis [Unknown]
  - Facial paralysis [Unknown]
  - Paradoxical embolism [Unknown]
  - Spinal cord compression [Unknown]
  - Femur fracture [Recovered/Resolved with Sequelae]
  - Tremor [Recovering/Resolving]
  - Parkinsonism [Unknown]
  - Hallucination, visual [Unknown]
  - Toxicity to various agents [Recovered/Resolved]
  - Hypertension [Unknown]
  - Fall [Unknown]
  - Pain in extremity [Unknown]
  - Mitral valve prolapse [Unknown]
  - Osteopenia [Unknown]
  - Bipolar disorder [Unknown]
  - Cerebrovascular accident [Unknown]
  - Iron deficiency anaemia [Unknown]
  - Lacunar infarction [Unknown]
  - Muscular weakness [Unknown]
  - Insomnia [Unknown]
  - Treatment noncompliance [Unknown]
  - Spinal compression fracture [Unknown]
  - Thoracic vertebral fracture [Unknown]
  - Peripheral swelling [Unknown]
  - Type 2 diabetes mellitus [Not Recovered/Not Resolved]
  - Wrist fracture [Unknown]
  - Tonsillar disorder [Unknown]
  - Borderline personality disorder [Unknown]
  - Musculoskeletal disorder [Unknown]
  - Transient ischaemic attack [Unknown]
  - Impaired healing [Unknown]
  - Hypothyroidism [Not Recovered/Not Resolved]
  - Deep vein thrombosis [Unknown]
  - Treatment noncompliance [Unknown]
  - Blood cholesterol increased [Unknown]
  - Pain [Unknown]
  - Urinary tract infection [Unknown]
  - Gastritis [Unknown]
  - Intervertebral disc protrusion [Unknown]

NARRATIVE: CASE EVENT DATE: 200512
